FAERS Safety Report 23356317 (Version 4)
Quarter: 2024Q1

REPORT INFORMATION
  Report Type: Spontaneous
  Country: JP (occurrence: JP)
  Receive Date: 20240102
  Receipt Date: 20240314
  Transmission Date: 20240410
  Serious: Yes (Hospitalization, Other)
  Sender: FDA-Public Use
  Company Number: JP-CELLTRION INC.-2023JP024087

PATIENT

DRUGS (18)
  1. TRASTUZUMAB [Suspect]
     Active Substance: TRASTUZUMAB
     Indication: Gastric cancer
     Dosage: 350 MILLIGRAM
     Route: 041
     Dates: start: 20230713, end: 20230713
  2. TRASTUZUMAB [Suspect]
     Active Substance: TRASTUZUMAB
     Indication: Breast cancer
     Dosage: 260 MILLIGRAM
     Route: 041
     Dates: start: 20231005, end: 20231005
  3. TRASTUZUMAB [Suspect]
     Active Substance: TRASTUZUMAB
     Dosage: 270 MILLIGRAM
     Route: 041
     Dates: start: 20231101, end: 20231101
  4. PERJETA [Suspect]
     Active Substance: PERTUZUMAB
     Indication: Breast cancer
     Dosage: 840 MG
     Route: 041
     Dates: start: 20230713, end: 20230713
  5. PERJETA [Suspect]
     Active Substance: PERTUZUMAB
     Dosage: 420 MILLIGRAM,  ADMINISTERED AS CYCLE 5.
     Route: 041
     Dates: start: 20231005, end: 20231005
  6. PERJETA [Suspect]
     Active Substance: PERTUZUMAB
     Dosage: 420 MILLIGRAM
     Route: 041
     Dates: start: 20231101, end: 20231101
  7. ROSUVASTATIN CALCIUM [Concomitant]
     Active Substance: ROSUVASTATIN CALCIUM
     Dosage: 1 DOSAGE FORM/DAY
     Route: 048
  8. AMLODIPINE BESYLATE\VALSARTAN [Concomitant]
     Active Substance: AMLODIPINE BESYLATE\VALSARTAN
     Dosage: 1 DOSAGE FORM/DAY
     Route: 048
  9. NICORANDIL [Concomitant]
     Active Substance: NICORANDIL
     Dosage: 3 DOSAGE FORM/DAY
     Route: 048
  10. LOXOPROFEN [Concomitant]
     Active Substance: LOXOPROFEN
     Dosage: 3 DOSAGE FORM/DAY
     Route: 048
  11. REBAMIPIDE [Concomitant]
     Active Substance: REBAMIPIDE
     Dosage: 3 DOSAGE FORM/DAY
     Route: 048
  12. MIROGABALIN BESYLATE [Concomitant]
     Active Substance: MIROGABALIN BESYLATE
     Dosage: 2 DOSAGE FORM/DAY
     Route: 048
  13. POLAPREZINC [Concomitant]
     Active Substance: POLAPREZINC
     Dosage: 2 DOSAGE FORM/DAY
     Route: 048
  14. METHYLCOBALAMIN [Concomitant]
     Active Substance: METHYLCOBALAMIN
     Dosage: 3 DOSAGE FORM/DAY
     Route: 048
  15. HEMOPORISON [Concomitant]
     Dosage: UNK
     Route: 054
  16. SHAKUYAKUKANZOTO [Concomitant]
     Active Substance: HERBALS
     Dosage: UNK
     Route: 048
  17. CALONAL [Concomitant]
     Active Substance: ACETAMINOPHEN
     Dosage: 2 DOSAGE FORM/DAY
     Route: 048
  18. EVENITY [Concomitant]
     Active Substance: ROMOSOZUMAB-AQQG
     Dosage: 2.34 MILLILITE/DAY
     Route: 058
     Dates: start: 20230705

REACTIONS (2)
  - Pericarditis [Recovered/Resolved]
  - Intentional product use issue [Unknown]

NARRATIVE: CASE EVENT DATE: 20231018
